FAERS Safety Report 17528730 (Version 1)
Quarter: 2020Q1

REPORT INFORMATION
  Report Type: Spontaneous
  Country: PL (occurrence: PL)
  Receive Date: 20200311
  Receipt Date: 20200311
  Transmission Date: 20200409
  Serious: Yes (Other)
  Sender: FDA-Public Use
  Company Number: PL-TEVA-2020-PL-1198208

PATIENT
  Age: 69 Year
  Sex: Male
  Weight: 74 kg

DRUGS (5)
  1. FLUOROURACIL EBEWE [Suspect]
     Active Substance: FLUOROURACIL
     Dosage: 2244 MG
     Route: 041
     Dates: start: 20190218, end: 20190220
  2. CALCIUM FOLINATE [Suspect]
     Active Substance: LEUCOVORIN CALCIUM
     Dosage: 374 MG
     Route: 042
     Dates: start: 20190218, end: 20190220
  3. IRINOTECAN KABI [Suspect]
     Active Substance: IRINOTECAN
     Dosage: 336.6 MG
     Route: 042
     Dates: start: 20190218, end: 20190218
  4. FLUOROURACIL EBEWE [Suspect]
     Active Substance: FLUOROURACIL
     Dosage: 748 MG
     Route: 040
     Dates: start: 20190218, end: 20190220
  5. ERBITUX [Suspect]
     Active Substance: CETUXIMAB
     Dosage: 935 MG
     Route: 042
     Dates: start: 20190218, end: 20190218

REACTIONS (1)
  - Neutropenia [Unknown]

NARRATIVE: CASE EVENT DATE: 20190304
